FAERS Safety Report 7439744-6 (Version None)
Quarter: 2011Q2

REPORT INFORMATION
  Report Type: 
  Country: None (occurrence: None)
  Receive Date: 20110427
  Receipt Date: 20110419
  Transmission Date: 20111010
  Serious: No
  Sender: FDA-Public Use
  Company Number: PHHY2011BR33600

PATIENT
  Sex: Male

DRUGS (3)
  1. RIVOTRIL [Suspect]
     Dosage: 3 DROPS AT NIGHT
  2. TRILEPTAL [Suspect]
     Indication: PSYCHOMOTOR HYPERACTIVITY
     Dosage: 3 ML, UNK
     Route: 048
  3. TRILEPTAL [Suspect]
     Dosage: 5 ML, UNK
     Dates: start: 20110419

REACTIONS (5)
  - ASTHENIA [None]
  - CHILLS [None]
  - FALL [None]
  - NERVOUSNESS [None]
  - NECK PAIN [None]
